FAERS Safety Report 10042487 (Version 3)
Quarter: 2019Q3

REPORT INFORMATION
  Report Type: Spontaneous
  Country: ES (occurrence: ES)
  Receive Date: 20140327
  Receipt Date: 20190705
  Transmission Date: 20191004
  Serious: Yes (Hospitalization, Other)
  Sender: FDA-Public Use
  Company Number: PHHY2014ES034402

PATIENT
  Age: 39 Year
  Sex: Female

DRUGS (4)
  1. TACROLIMUS. [Suspect]
     Active Substance: TACROLIMUS
     Indication: SECONDARY IMMUNODEFICIENCY
  2. IMUREL [Suspect]
     Active Substance: AZATHIOPRINE SODIUM
     Indication: SECONDARY IMMUNODEFICIENCY
  3. TACROLIMUS. [Suspect]
     Active Substance: TACROLIMUS
     Indication: TRANSPLANT
     Dosage: UNK
     Route: 065
  4. IMUREL [Suspect]
     Active Substance: AZATHIOPRINE SODIUM
     Indication: TRANSPLANT
     Dosage: UNK
     Route: 065

REACTIONS (8)
  - Acute pulmonary oedema [Unknown]
  - Breech presentation [Unknown]
  - Premature delivery [Unknown]
  - Diarrhoea [Unknown]
  - Maternal exposure during pregnancy [Recovered/Resolved]
  - Renal failure [Unknown]
  - Hypertensive crisis [Unknown]
  - Coarctation of the aorta [Unknown]

NARRATIVE: CASE EVENT DATE: 2011
